FAERS Safety Report 6813554-2 (Version None)
Quarter: 2010Q3

REPORT INFORMATION
  Report Type: 
  Country: None (occurrence: None)
  Receive Date: 20100701
  Receipt Date: 20100617
  Transmission Date: 20110219
  Serious: Yes (Hospitalization)
  Sender: FDA-Public Use
  Company Number: FR-ELI_LILLY_AND_COMPANY-FR201004003550

PATIENT
  Sex: Female
  Weight: 48 kg

DRUGS (5)
  1. FORTEO [Suspect]
     Indication: OSTEOPOROSIS
     Dosage: 20 UG, DAILY (1/D)
     Route: 065
     Dates: start: 20091102
  2. IDEOS [Concomitant]
     Indication: OSTEOPOROTIC FRACTURE
     Dosage: UNK, UNKNOWN
     Route: 065
  3. HEMIGOXINE [Concomitant]
     Dosage: UNK, UNKNOWN
     Route: 065
  4. EPINITRIL [Concomitant]
     Dosage: 5 MG, DAILY (1/D)
     Route: 065
  5. PREVISCAN                          /00261401/ [Concomitant]
     Dosage: UNKNOWN
     Route: 065

REACTIONS (5)
  - ANXIETY [None]
  - HYPERCALCAEMIA [None]
  - MENTAL IMPAIRMENT [None]
  - THERAPEUTIC AGENT TOXICITY [None]
  - TREMOR [None]
